FAERS Safety Report 6913314-8 (Version None)
Quarter: 2010Q3

REPORT INFORMATION
  Report Type: 
  Country: None (occurrence: None)
  Receive Date: 20100809
  Receipt Date: 20100730
  Transmission Date: 20110219
  Serious: Yes (Other)
  Sender: FDA-Public Use
  Company Number: US-ELI_LILLY_AND_COMPANY-US201007002963

PATIENT
  Sex: Female
  Weight: 90.703 kg

DRUGS (2)
  1. BYETTA [Suspect]
     Indication: TYPE 2 DIABETES MELLITUS
     Dosage: 5 UG, 2/D
     Route: 058
  2. METFORMIN HCL [Concomitant]
     Dosage: 2000 MG, DAILY (1/D)

REACTIONS (7)
  - BLISTER [None]
  - BLISTER INFECTED [None]
  - DECREASED APPETITE [None]
  - PRURITUS [None]
  - THROMBOSIS [None]
  - URTICARIA [None]
  - WEIGHT DECREASED [None]
